FAERS Safety Report 14213014 (Version 1)
Quarter: 2017Q4

REPORT INFORMATION
  Report Type: Spontaneous
  Country: US (occurrence: US)
  Receive Date: 20171121
  Receipt Date: 20171121
  Transmission Date: 20180321
  Serious: Yes (Death)
  Sender: FDA-Public Use
  Company Number: US-ALVOGEN-2017-ALVOGEN-094088

PATIENT
  Age: 24 Year
  Sex: Female

DRUGS (13)
  1. MIDAZOLAM [Interacting]
     Active Substance: MIDAZOLAM HYDROCHLORIDE
     Indication: PRODUCT USED FOR UNKNOWN INDICATION
  2. TRAMADOL. [Interacting]
     Active Substance: TRAMADOL
     Indication: PRODUCT USED FOR UNKNOWN INDICATION
  3. CARBAMAZEPINE. [Interacting]
     Active Substance: CARBAMAZEPINE
     Indication: PRODUCT USED FOR UNKNOWN INDICATION
     Route: 048
  4. CODEINE PHOSPHATE [Interacting]
     Active Substance: CODEINE PHOSPHATE
     Indication: PRODUCT USED FOR UNKNOWN INDICATION
  5. MIRTAZAPINE. [Interacting]
     Active Substance: MIRTAZAPINE
     Indication: PRODUCT USED FOR UNKNOWN INDICATION
     Dosage: 30 MG ORALLY NIGHTLY
     Route: 048
  6. HYDROCODONE/ACETAMINOPHEN [Interacting]
     Active Substance: ACETAMINOPHEN\HYDROCODONE
     Indication: PAIN
     Dosage: 325/10 MG
     Route: 048
  7. METOCLOPRAMIDE. [Interacting]
     Active Substance: METOCLOPRAMIDE
     Indication: PRODUCT USED FOR UNKNOWN INDICATION
  8. HYDROMORPHONE [Interacting]
     Active Substance: HYDROMORPHONE
     Indication: PAIN
     Route: 048
  9. INSULIN GLARGINE [Concomitant]
     Active Substance: INSULIN GLARGINE
     Indication: PRODUCT USED FOR UNKNOWN INDICATION
     Dosage: 15-20 UNITS SUBCUTANEOUSLY NIGHTLY
     Route: 058
  10. MORPHINE SULFATE. [Interacting]
     Active Substance: MORPHINE SULFATE
     Indication: PRODUCT USED FOR UNKNOWN INDICATION
     Route: 048
  11. DIPHENHYDRAMINE. [Interacting]
     Active Substance: DIPHENHYDRAMINE
     Indication: PRODUCT USED FOR UNKNOWN INDICATION
  12. FLUOXETINE [Suspect]
     Active Substance: FLUOXETINE HYDROCHLORIDE
     Indication: PRODUCT USED FOR UNKNOWN INDICATION
     Route: 048
  13. LIDOCAINE. [Interacting]
     Active Substance: LIDOCAINE
     Indication: PRODUCT USED FOR UNKNOWN INDICATION

REACTIONS (8)
  - Paralysis [Fatal]
  - Hypotension [Fatal]
  - Drug interaction [Fatal]
  - Accidental overdose [Fatal]
  - Deafness [Fatal]
  - Respiratory failure [Fatal]
  - Arrhythmia [Fatal]
  - Cardiac arrest [Fatal]
